FAERS Safety Report 15526560 (Version 5)
Quarter: 2019Q1

REPORT INFORMATION
  Report Type: Spontaneous
  Country: JP (occurrence: JP)
  Receive Date: 20181018
  Receipt Date: 20190313
  Transmission Date: 20190417
  Serious: Yes (Death, Hospitalization, Other)
  Sender: FDA-Public Use
  Company Number: JP-DSJP-DSJ-2018-143489

PATIENT

DRUGS (11)
  1. LIXIANA TABLETS [Suspect]
     Active Substance: EDOXABAN TOSYLATE
     Indication: ATRIAL FIBRILLATION
     Dosage: 30 MG, QD
     Route: 048
     Dates: start: 20171218, end: 20180925
  2. BOIOGITO                           /07975201/ [Suspect]
     Active Substance: HERBALS
     Indication: ARTHRITIS
     Dosage: 2.5 G, TID
     Route: 048
     Dates: end: 20180925
  3. ROSUVASTATIN                       /01588602/ [Concomitant]
     Active Substance: ROSUVASTATIN CALCIUM
     Indication: MYOCARDIAL INFARCTION
     Dosage: 5 MG, QD
     Route: 048
     Dates: start: 20180604, end: 20180926
  4. CARVEDILOL. [Concomitant]
     Active Substance: CARVEDILOL
     Indication: CARDIAC FAILURE CONGESTIVE
     Dosage: 1.25 MG, QD
     Route: 048
     Dates: start: 20180604, end: 20180930
  5. CELECOX [Concomitant]
     Active Substance: CELECOXIB
     Indication: CHONDROCALCINOSIS PYROPHOSPHATE
     Dosage: 200 MG, BID
     Route: 048
     Dates: end: 20180926
  6. CLOPIDOGREL [Concomitant]
     Active Substance: CLOPIDOGREL BISULFATE
     Indication: MYOCARDIAL INFARCTION
     Dosage: 75 MG, QD
     Route: 048
     Dates: start: 20180604, end: 20180926
  7. FEBURIC [Concomitant]
     Active Substance: FEBUXOSTAT
     Indication: HYPERURICAEMIA
     Dosage: 10 MG, QD
     Route: 048
     Dates: start: 20180129, end: 20180927
  8. BAYASPIRIN [Concomitant]
     Active Substance: ASPIRIN
     Indication: MYOCARDIAL INFARCTION
     Dosage: 100 MG, QD
     Route: 048
     Dates: start: 20180604, end: 20180930
  9. TAKECAB [Concomitant]
     Active Substance: VONOPRAZAN FUMURATE
     Indication: PROPHYLAXIS AGAINST GASTROINTESTINAL ULCER
     Dosage: 10 MG, QD
     Route: 048
     Dates: start: 20180105, end: 20180930
  10. CLOPIDOGREL [Concomitant]
     Active Substance: CLOPIDOGREL BISULFATE
     Indication: STENT PLACEMENT
  11. FERROUS CITRATE [Concomitant]
     Active Substance: FERROUS CITRATE
     Indication: ANAEMIA
     Dosage: 50 MG, BID
     Route: 048
     Dates: start: 20180514, end: 20181020

REACTIONS (3)
  - Interstitial lung disease [Fatal]
  - Cardiac failure congestive [Unknown]
  - Cardiac failure [Fatal]

NARRATIVE: CASE EVENT DATE: 20171222
